FAERS Safety Report 16243448 (Version 1)
Quarter: 2019Q2

REPORT INFORMATION
  Report Type: Spontaneous
  Country: US (occurrence: US)
  Receive Date: 20190425
  Receipt Date: 20190425
  Transmission Date: 20190711
  Serious: Yes (Death)
  Sender: FDA-Public Use
  Company Number: None

PATIENT
  Age: 75 Year
  Sex: Female
  Weight: 56.2 kg

DRUGS (5)
  1. CYCLOPHOSPHAMIDE. [Concomitant]
     Active Substance: CYCLOPHOSPHAMIDE
     Dates: start: 20190309, end: 20190311
  2. FLUDARABINE PHOSPHATE. [Concomitant]
     Active Substance: FLUDARABINE PHOSPHATE
     Dates: start: 20190309, end: 20190311
  3. TOCILIZUMAB. [Concomitant]
     Active Substance: TOCILIZUMAB
     Dates: start: 20190316, end: 20190318
  4. SILTUXIMAB [Concomitant]
     Active Substance: SILTUXIMAB
     Dates: start: 20190321, end: 20190321
  5. AXICABTAGENE CILOLEUCEL [Suspect]
     Active Substance: AXICABTAGENE CILOLEUCEL
     Indication: DIFFUSE LARGE B-CELL LYMPHOMA
     Dosage: ?          OTHER FREQUENCY:ONCE;?
     Dates: start: 20190314, end: 20190314

REACTIONS (13)
  - Generalised oedema [None]
  - Hypertension [None]
  - Cytokine release syndrome [None]
  - Pancytopenia [None]
  - Skin exfoliation [None]
  - Tachycardia [None]
  - Neurotoxicity [None]
  - Bradypnoea [None]
  - Renal failure [None]
  - Fluid overload [None]
  - Cerebral disorder [None]
  - Blister [None]
  - Bone marrow failure [None]

NARRATIVE: CASE EVENT DATE: 20190318
